FAERS Safety Report 23258011 (Version 2)
Quarter: 2025Q2

REPORT INFORMATION
  Report Type: Report from Study
  Country: CA (occurrence: CA)
  Receive Date: 20231204
  Receipt Date: 20250604
  Transmission Date: 20250717
  Serious: Yes (Other)
  Sender: SANOFI AVENTIS
  Company Number: CA-SA-2023SA372662

PATIENT
  Age: 68 Year
  Sex: Male

DRUGS (2)
  1. DUPILUMAB [Suspect]
     Active Substance: DUPILUMAB
     Indication: Dermatitis atopic
     Route: 058
     Dates: start: 2023, end: 2023
  2. DUPILUMAB [Suspect]
     Active Substance: DUPILUMAB
     Dosage: 300 MG, QOW
     Route: 058
     Dates: start: 20230602

REACTIONS (6)
  - Dermatitis exfoliative generalised [Unknown]
  - Urticaria [Unknown]
  - Pruritus [Unknown]
  - Rash macular [Unknown]
  - Drug ineffective [Unknown]
  - Hand dermatitis [Unknown]

NARRATIVE: CASE EVENT DATE: 20231101
